FAERS Safety Report 9669109 (Version 1)
Quarter: 2013Q4

REPORT INFORMATION
  Report Type: Spontaneous
  Country: US (occurrence: None)
  Receive Date: 20131104
  Receipt Date: 20131104
  Transmission Date: 20140711
  Serious: Yes (Other)
  Sender: FDA-Public Use
  Company Number: None

PATIENT
  Age: 49 Year
  Sex: Female
  Weight: 112.49 kg

DRUGS (1)
  1. ALBUTEROL [Suspect]
     Indication: ASTHMA
     Dosage: ONE VIAL IN NEBULIZER EVERY 6, AS NEEDED, INHALATION
     Route: 055
     Dates: start: 20131029, end: 20131031

REACTIONS (5)
  - Wheezing [None]
  - Dyspnoea [None]
  - Cough [None]
  - Obstructive airways disorder [None]
  - Poor quality drug administered [None]
